FAERS Safety Report 15980338 (Version 1)
Quarter: 2019Q1

REPORT INFORMATION
  Report Type: Spontaneous
  Country: US (occurrence: US)
  Receive Date: 20190213
  Receipt Date: 20190213
  Transmission Date: 20190418
  Serious: Yes (Other)
  Sender: FDA-Public Use
  Company Number: None

PATIENT
  Age: 39 Year
  Sex: Female
  Weight: 56.25 kg

DRUGS (1)
  1. NEW U LIFE SOMADERM GEL NDC#61877-0005-1 [Suspect]
     Active Substance: HOMEOPATHICS
     Dates: start: 20180919, end: 20181122

REACTIONS (3)
  - Rash [None]
  - Product complaint [None]
  - Heart rate increased [None]

NARRATIVE: CASE EVENT DATE: 20181101
